FAERS Safety Report 8541010-2 (Version None)
Quarter: 2012Q3

REPORT INFORMATION
  Report Type: 
  Country: None (occurrence: None)
  Receive Date: 20120726
  Receipt Date: 20110812
  Transmission Date: 20120928
  Serious: No
  Sender: FDA-Public Use
  Company Number: US-ASTRAZENECA-2011SE48581

PATIENT
  Age: 50 Year
  Sex: Male

DRUGS (2)
  1. ZOLOFT [Concomitant]
  2. SEROQUEL [Suspect]
     Indication: BIPOLAR DISORDER
     Route: 048

REACTIONS (2)
  - DIABETES MELLITUS [None]
  - HYPOAESTHESIA [None]
